FAERS Safety Report 25435614 (Version 1)
Quarter: 2025Q2

REPORT INFORMATION
  Report Type: Spontaneous
  Country: US (occurrence: None)
  Receive Date: 20250613
  Receipt Date: 20250613
  Transmission Date: 20250716
  Serious: Yes (Disabling)
  Sender: FDA-CTU
  Company Number: None

PATIENT
  Age: 52 Year
  Sex: Female
  Weight: 51.75 kg

DRUGS (1)
  1. MOUNJARO [Suspect]
     Active Substance: TIRZEPATIDE
     Indication: Obesity
     Route: 050
     Dates: end: 20250519

REACTIONS (3)
  - Irritable bowel syndrome [None]
  - Allodynia [None]
  - Movement disorder [None]

NARRATIVE: CASE EVENT DATE: 20250521
